FAERS Safety Report 7014379-8 (Version None)
Quarter: 2010Q3

REPORT INFORMATION
  Report Type: 
  Country: None (occurrence: None)
  Receive Date: 20100924
  Receipt Date: 20100924
  Transmission Date: 20110219
  Serious: No
  Sender: FDA-Public Use
  Company Number: None

PATIENT
  Age: 57 Year
  Sex: Male

DRUGS (1)
  1. IBUPROPION [Suspect]
     Dosage: 150 MG BID PO
     Route: 048
     Dates: start: 20090616, end: 20090724

REACTIONS (2)
  - ANAPHYLACTIC REACTION [None]
  - URINARY TRACT PAIN [None]
